FAERS Safety Report 5695427-4 (Version None)
Quarter: 2008Q2

REPORT INFORMATION
  Report Type: 
  Country: None (occurrence: None)
  Receive Date: 20080403
  Receipt Date: 20080317
  Transmission Date: 20081010
  Serious: Yes (Hospitalization, Other)
  Sender: FDA-Public Use
  Company Number: 20084956

PATIENT
  Age: 62 Year
  Sex: Female

DRUGS (1)
  1. LIORESAL [Suspect]
     Indication: MUSCLE SPASTICITY
     Dosage: DAILY, INTRATHECAL
     Route: 037

REACTIONS (5)
  - ASTHENIA [None]
  - COMPLICATION OF DEVICE INSERTION [None]
  - HEADACHE [None]
  - INTRACRANIAL HYPOTENSION [None]
  - SOMNOLENCE [None]
